FAERS Safety Report 25437890 (Version 2)
Quarter: 2025Q4

REPORT INFORMATION
  Report Type: Report from Study
  Country: JP (occurrence: JP)
  Receive Date: 20250616
  Receipt Date: 20251017
  Transmission Date: 20260117
  Serious: Yes (Hospitalization)
  Sender: ABBVIE
  Company Number: JP-ABBVIE-6325311

PATIENT
  Age: 67 Year
  Sex: Female

DRUGS (2)
  1. VYALEV [Suspect]
     Active Substance: FOSCARBIDOPA\FOSLEVODOPA
     Indication: Parkinson^s disease
     Dosage: 0.24 ML/DAY, DOSE DECREASED
     Route: 058
     Dates: start: 20250611
  2. VYALEV [Suspect]
     Active Substance: FOSCARBIDOPA\FOSLEVODOPA
     Dosage: 0.26 ML/DAY, STOP DATE 2025
     Route: 058
     Dates: start: 20250527

REACTIONS (7)
  - Suicidal ideation [Recovered/Resolved]
  - Activities of daily living decreased [Unknown]
  - Restlessness [Unknown]
  - Feeling abnormal [Unknown]
  - Adverse event [Unknown]
  - Delusion [Unknown]
  - Stress [Unknown]

NARRATIVE: CASE EVENT DATE: 20250101
